FAERS Safety Report 13890876 (Version 2)
Quarter: 2017Q3

REPORT INFORMATION
  Report Type: Spontaneous
  Country: US (occurrence: US)
  Receive Date: 20170822
  Receipt Date: 20170919
  Transmission Date: 20171127
  Serious: Yes (Death, Hospitalization, Other)
  Sender: FDA-Public Use
  Company Number: US-CLOVIS ONCOLOGY-CLO-2017-000875

PATIENT
  Sex: Female

DRUGS (1)
  1. RUBRACA [Suspect]
     Active Substance: RUCAPARIB CAMSYLATE
     Indication: OVARIAN CANCER
     Dosage: 600 MG, BID
     Route: 048
     Dates: start: 20170725, end: 201708

REACTIONS (8)
  - Malabsorption [Unknown]
  - Product solubility abnormal [Unknown]
  - Vomiting [Unknown]
  - Malignant neoplasm progression [Fatal]
  - Nausea [Unknown]
  - Ileus [Unknown]
  - Constipation [Unknown]
  - Ascites [Unknown]

NARRATIVE: CASE EVENT DATE: 2017
